FAERS Safety Report 18226720 (Version 1)
Quarter: 2020Q3

REPORT INFORMATION
  Report Type: Spontaneous
  Country: US (occurrence: US)
  Receive Date: 20200902
  Receipt Date: 20200902
  Transmission Date: 20201103
  Serious: Yes (Hospitalization)
  Sender: FDA-Public Use
  Company Number: None

PATIENT
  Sex: Female

DRUGS (3)
  1. TASIGNA [Suspect]
     Active Substance: NILOTINIB
     Indication: CHRONIC MYELOID LEUKAEMIA
     Route: 048
     Dates: start: 20180320
  2. ENOXAPARIN [Concomitant]
     Active Substance: ENOXAPARIN
  3. BUMETANIDE. [Concomitant]
     Active Substance: BUMETANIDE

REACTIONS (5)
  - Anaemia [None]
  - Rash [None]
  - Alopecia [None]
  - Ulcer haemorrhage [None]
  - Dyspnoea [None]
